FAERS Safety Report 5216891-0 (Version None)
Quarter: 2007Q1

REPORT INFORMATION
  Report Type: 
  Country: None (occurrence: None)
  Receive Date: 20070119
  Receipt Date: 20070103
  Transmission Date: 20070707
  Serious: Yes (Other)
  Sender: FDA-Public Use
  Company Number: 2007EU000042

PATIENT
  Age: 9 Year
  Sex: Female

DRUGS (2)
  1. PROGRAF [Suspect]
     Indication: RENAL TRANSPLANT
  2. MYCOPHENOLATE MOFETIL/MYCOPHANOLATE MOFETIL) [Suspect]
     Indication: RENAL TRANSPLANT

REACTIONS (7)
  - DRUG TOXICITY [None]
  - FOCAL GLOMERULOSCLEROSIS [None]
  - GENERAL PHYSICAL HEALTH DETERIORATION [None]
  - HAEMODIALYSIS [None]
  - KIDNEY FIBROSIS [None]
  - NEPHROTIC SYNDROME [None]
  - RENAL TUBULAR ATROPHY [None]
